FAERS Safety Report 8234680-X (Version None)
Quarter: 2012Q1

REPORT INFORMATION
  Report Type: 
  Country: None (occurrence: None)
  Receive Date: 20120326
  Receipt Date: 20120320
  Transmission Date: 20120608
  Serious: Yes (Other)
  Sender: FDA-Public Use
  Company Number: CA-PFIZER INC-2012073510

PATIENT
  Sex: Male

DRUGS (1)
  1. VARENICLINE TARTRATE [Suspect]
     Dosage: UNK
     Dates: start: 20120201

REACTIONS (7)
  - ANGER [None]
  - RESTLESSNESS [None]
  - DEPRESSED MOOD [None]
  - POOR QUALITY SLEEP [None]
  - EMOTIONAL DISORDER [None]
  - VIOLENCE-RELATED SYMPTOM [None]
  - NEGATIVE THOUGHTS [None]
